FAERS Safety Report 9471678 (Version 1)
Quarter: 2013Q3

REPORT INFORMATION
  Report Type: Spontaneous
  Country: CA (occurrence: CA)
  Receive Date: 20130822
  Receipt Date: 20130822
  Transmission Date: 20140515
  Serious: Yes (Death, Hospitalization)
  Sender: FDA-Public Use
  Company Number: CA-BAXTER-2013BAX032252

PATIENT
  Age: 46 Year
  Sex: Male

DRUGS (1)
  1. DIANEAL PD4 SOLUTION WITH 2.5% DEXTROSE AND 2.5 MEQ/L CALCIUM [Suspect]
     Indication: PERITONEAL DIALYSIS
     Route: 033
     Dates: start: 201305, end: 20130812

REACTIONS (3)
  - Cardiac arrest [Fatal]
  - Pulmonary embolism [Unknown]
  - Lung infection [Unknown]
